FAERS Safety Report 11653166 (Version 2)
Quarter: 2015Q4

REPORT INFORMATION
  Report Type: Report from Study
  Country: US (occurrence: US)
  Receive Date: 20151022
  Receipt Date: 20151026
  Transmission Date: 20160304
  Serious: Yes (Hospitalization, Other)
  Sender: FDA-Public Use
  Company Number: US-ABBVIE-15K-163-1482885-00

PATIENT
  Age: 39 Year
  Sex: Female
  Weight: 90.8 kg

DRUGS (1)
  1. HUMIRA [Suspect]
     Active Substance: ADALIMUMAB
     Indication: CROHN^S DISEASE
     Route: 065
     Dates: start: 20140311, end: 20150813

REACTIONS (3)
  - Enterovesical fistula [Recovered/Resolved]
  - Drug ineffective [Recovered/Resolved]
  - Intestinal operation [Recovered/Resolved]

NARRATIVE: CASE EVENT DATE: 2015
